FAERS Safety Report 21459355 (Version 2)
Quarter: 2022Q4

REPORT INFORMATION
  Report Type: Report from Study
  Country: RO (occurrence: None)
  Receive Date: 20221014
  Receipt Date: 20221101
  Transmission Date: 20230112
  Serious: Yes (Other)
  Sender: FDA-Public Use
  Company Number: 2022A343965

PATIENT
  Age: 72 Year
  Sex: Female
  Weight: 44 kg

DRUGS (2)
  1. LYNPARZA [Suspect]
     Active Substance: OLAPARIB
     Indication: Ovarian neoplasm
     Route: 048
     Dates: start: 202207, end: 20221006
  2. LYNPARZA [Suspect]
     Active Substance: OLAPARIB
     Indication: Ovarian neoplasm
     Route: 048

REACTIONS (2)
  - Haematotoxicity [Recovered/Resolved]
  - Anaemia [Recovered/Resolved]

NARRATIVE: CASE EVENT DATE: 20221006
